FAERS Safety Report 5824488-4 (Version None)
Quarter: 2008Q3

REPORT INFORMATION
  Report Type: 
  Country: None (occurrence: None)
  Receive Date: 20080728
  Receipt Date: 20080714
  Transmission Date: 20090109
  Serious: Yes (Hospitalization)
  Sender: FDA-Public Use
  Company Number: US-JNJFOC-20080703542

PATIENT
  Sex: Male

DRUGS (10)
  1. REMICADE [Suspect]
     Route: 042
  2. REMICADE [Suspect]
     Route: 042
  3. REMICADE [Suspect]
     Indication: CROHN'S DISEASE
     Route: 042
  4. 5-ASA [Concomitant]
     Route: 048
  5. PREDNISONE TAB [Concomitant]
     Route: 048
  6. ANTIBIOTICS [Concomitant]
     Indication: CROHN'S DISEASE
  7. MULTI-VITAMINS [Concomitant]
  8. FERROUS SULFATE TAB [Concomitant]
  9. MORPHINE [Concomitant]
  10. PERIACTIN [Concomitant]

REACTIONS (2)
  - CROHN'S DISEASE [None]
  - PELVIC ABSCESS [None]
